FAERS Safety Report 10993989 (Version 1)
Quarter: 2015Q2

REPORT INFORMATION
  Report Type: Spontaneous
  Country: IT (occurrence: None)
  Receive Date: 20150403
  Receipt Date: 20150403
  Transmission Date: 20150821
  Serious: Yes (Life-Threatening)
  Sender: FDA-Public Use
  Company Number: FK201501606

PATIENT
  Age: 48 Year
  Sex: Female
  Weight: 84 kg

DRUGS (3)
  1. PANTORC (PANTOPRAZOLE SODIUM SESQUIHYDRATE) [Concomitant]
  2. PROPOFOL. [Suspect]
     Active Substance: PROPOFOL
     Indication: ANAESTHESIA
     Dosage: 480 MG, 1 IN 1, TOTAL
     Dates: start: 20150325, end: 20150325
  3. ULTIVA (REMIFENTANIL HYDROCHLORIDE) [Concomitant]

REACTIONS (4)
  - Hypotension [None]
  - Electrocardiogram ST segment depression [None]
  - Lactic acidosis [None]
  - Electrocardiogram ST segment elevation [None]

NARRATIVE: CASE EVENT DATE: 20150325
